FAERS Safety Report 9393990 (Version 2)
Quarter: 2013Q3

REPORT INFORMATION
  Report Type: Spontaneous
  Country: US (occurrence: US)
  Receive Date: 20130710
  Receipt Date: 20130715
  Transmission Date: 20140515
  Serious: Yes (Other)
  Sender: FDA-Public Use
  Company Number: CHPA2013US010866

PATIENT
  Age: 55 Year
  Sex: Female

DRUGS (2)
  1. PERDIEM FIBER [Suspect]
     Indication: CONSTIPATION
     Dosage: UNK, UNK
     Route: 048
     Dates: start: 1995, end: 2004
  2. PERDIEM OVERNIGHT RELIEF PILLS [Suspect]
     Indication: CONSTIPATION
     Dosage: 2-5 PILLS, QD
     Dates: start: 2004, end: 2004

REACTIONS (4)
  - Hernia [Recovered/Resolved]
  - Lymphoedema [Not Recovered/Not Resolved]
  - Constipation [Not Recovered/Not Resolved]
  - Incorrect drug administration duration [Unknown]
